FAERS Safety Report 17028140 (Version 3)
Quarter: 2019Q4

REPORT INFORMATION
  Report Type: Spontaneous
  Country: US (occurrence: US)
  Receive Date: 20191113
  Receipt Date: 20191223
  Transmission Date: 20200122
  Serious: Yes (Other)
  Sender: FDA-Public Use
  Company Number: US-AKORN PHARMACEUTICALS-2019AKN02346

PATIENT
  Age: 14 Year
  Sex: Male
  Weight: 72.56 kg

DRUGS (7)
  1. MYORISAN [Suspect]
     Active Substance: ISOTRETINOIN
     Indication: ACNE
     Dosage: 10 MG, 1X/DAY
     Route: 048
     Dates: start: 20190723, end: 20190819
  2. PROBIOTIC [Concomitant]
     Active Substance: PROBIOTICS NOS
  3. FAMOTIDINE. [Concomitant]
     Active Substance: FAMOTIDINE
     Dosage: 20 MG
  4. HYPERCARE [Concomitant]
     Active Substance: ALCOHOL\ALUMINUM CHLORIDE
  5. MYORISAN [Suspect]
     Active Substance: ISOTRETINOIN
     Indication: ACNE
     Dosage: 20 MG, 1X/DAY
     Route: 048
     Dates: start: 20190822, end: 20190919
  6. MYORISAN [Suspect]
     Active Substance: ISOTRETINOIN
     Dosage: 20 MG, 2X/DAY
     Route: 048
     Dates: start: 20190919, end: 20191101
  7. CONCERTA [Concomitant]
     Active Substance: METHYLPHENIDATE HYDROCHLORIDE
     Dosage: 54 MG

REACTIONS (2)
  - Off label use [Recovered/Resolved]
  - Depression [Unknown]

NARRATIVE: CASE EVENT DATE: 2019
